FAERS Safety Report 19706792 (Version 1)
Quarter: 2021Q3

REPORT INFORMATION
  Report Type: Spontaneous
  Country: US (occurrence: US)
  Receive Date: 20210816
  Receipt Date: 20210816
  Transmission Date: 20211014
  Serious: Yes (Life-Threatening, Hospitalization, Other)
  Sender: FDA-Public Use
  Company Number: None

PATIENT
  Age: 64 Year
  Sex: Female
  Weight: 44.1 kg

DRUGS (2)
  1. MEROPENEM. [Suspect]
     Active Substance: MEROPENEM
     Route: 041
     Dates: start: 20200914, end: 20200918
  2. VANCOMYCIN [Suspect]
     Active Substance: VANCOMYCIN
     Route: 041
     Dates: start: 20200911, end: 20200915

REACTIONS (10)
  - Weight increased [None]
  - Inflammation [None]
  - Gait inability [None]
  - Candida infection [None]
  - Necrotising fasciitis [None]
  - Peripheral swelling [None]
  - Blister [None]
  - Streptococcal infection [None]
  - Necrosis [None]
  - Wound infection [None]

NARRATIVE: CASE EVENT DATE: 20200910
